FAERS Safety Report 5803945-0 (Version None)
Quarter: 2008Q3

REPORT INFORMATION
  Report Type: 
  Country: None (occurrence: None)
  Receive Date: 20080708
  Receipt Date: 20080626
  Transmission Date: 20090109
  Serious: Yes (Disabling)
  Sender: FDA-Public Use
  Company Number: GB-PFIZER INC-2008054611

PATIENT
  Age: 81 Year
  Sex: Female
  Weight: 80 kg

DRUGS (11)
  1. LYRICA [Suspect]
     Indication: NEURALGIA
     Route: 048
     Dates: start: 20080530, end: 20080605
  2. ASPIRIN [Concomitant]
     Route: 048
  3. ATENOLOL [Concomitant]
     Route: 048
  4. BENDROFLUAZIDE [Concomitant]
     Route: 048
  5. CALCIUM PHOSPHATE W/COLECALCIFEROL [Concomitant]
     Route: 048
  6. CO-DYDRAMOL [Concomitant]
     Route: 048
  7. FLUOXETINE [Concomitant]
     Route: 048
  8. OMEPRAZOLE [Concomitant]
     Route: 048
  9. PERINDOPRIL ERBUMINE [Concomitant]
     Route: 048
  10. PHENYTOIN [Concomitant]
     Route: 048
  11. SIMVASTATIN [Concomitant]
     Route: 048

REACTIONS (2)
  - MOTOR DYSFUNCTION [None]
  - MUSCULOSKELETAL DISCOMFORT [None]
